FAERS Safety Report 4406301-5 (Version None)
Quarter: 2004Q3

REPORT INFORMATION
  Report Type: 
  Country: None (occurrence: None)
  Receive Date: 20040723
  Receipt Date: 20030612
  Transmission Date: 20050211
  Serious: No
  Sender: FDA-Public Use
  Company Number: US-GLAXOSMITHKLINE-A0412086A

PATIENT
  Sex: Female

DRUGS (6)
  1. AVANDIA [Suspect]
     Dosage: 2MG PER DAY
     Route: 048
     Dates: start: 20030501
  2. PLAVIX [Concomitant]
     Route: 048
  3. EFFEXOR [Concomitant]
     Route: 048
  4. VIOXX [Concomitant]
     Route: 048
  5. EYE DROPS(UNSPECIFIED) [Concomitant]
  6. UNKNOWN WATERPILL [Concomitant]

REACTIONS (2)
  - DEHYDRATION [None]
  - NAUSEA [None]
